FAERS Safety Report 4338368-7 (Version None)
Quarter: 2004Q2

REPORT INFORMATION
  Report Type: 
  Country: None (occurrence: None)
  Receive Date: 20040407
  Receipt Date: 20040225
  Transmission Date: 20050107
  Serious: Yes (Hospitalization)
  Sender: FDA-Public Use
  Company Number: MEDI-0001524

PATIENT
  Sex: Female
  Weight: 3 kg

DRUGS (2)
  1. SYNAGIS [Suspect]
     Indication: ANTIVIRAL PROPHYLAXIS
     Dosage: 1 IN 30 D, INTRA-MUSCULAR; 45 MG , 1 IN 30 D, INTRA-MUSCULAR
     Route: 030
     Dates: start: 20040211
  2. CYSTIC FIBROSIS ENZYMES [Concomitant]

REACTIONS (4)
  - CYTOMEGALOVIRUS TEST POSITIVE [None]
  - HEPATIC ENZYME INCREASED [None]
  - JAUNDICE [None]
  - OBSTRUCTION [None]
